FAERS Safety Report 5254707-7 (Version None)
Quarter: 2007Q1

REPORT INFORMATION
  Report Type: 
  Country: None (occurrence: None)
  Receive Date: 20070227
  Receipt Date: 20070210
  Transmission Date: 20070707
  Serious: Yes (Death)
  Sender: FDA-Public Use
  Company Number: US019398

PATIENT
  Age: 39 Year
  Sex: Female

DRUGS (2)
  1. ACTIQ [Suspect]
     Dates: end: 20070208
  2. PROVIGIL [Suspect]
     Dates: end: 20070208

REACTIONS (4)
  - ALCOHOL USE [None]
  - CARDIAC DISORDER [None]
  - GASTROINTESTINAL DISORDER [None]
  - INFLUENZA [None]
